FAERS Safety Report 10771832 (Version 3)
Quarter: 2015Q1

REPORT INFORMATION
  Report Type: Report from Study
  Country: AU (occurrence: AU)
  Receive Date: 20150206
  Receipt Date: 20150225
  Transmission Date: 20150721
  Serious: Yes (Hospitalization, Other)
  Sender: FDA-Public Use
  Company Number: AU-GILEAD-2015-0134978

PATIENT
  Age: 72 Year
  Sex: Male
  Weight: 63.1 kg

DRUGS (23)
  1. RITUXIMAB [Suspect]
     Active Substance: RITUXIMAB
     Dosage: 930 MG, CYCLICAL
     Route: 042
     Dates: start: 20141201, end: 20141201
  2. PARACETAMOL [Concomitant]
     Active Substance: ACETAMINOPHEN
     Indication: PROPHYLAXIS
  3. RITUXIMAB [Suspect]
     Active Substance: RITUXIMAB
     Dosage: 870 MG, CYCLICAL
     Route: 042
     Dates: start: 20150128, end: 20150128
  4. PARACETAMOL [Concomitant]
     Active Substance: ACETAMINOPHEN
     Indication: PYREXIA
  5. RITUXIMAB [Suspect]
     Active Substance: RITUXIMAB
     Indication: CHRONIC LYMPHOCYTIC LEUKAEMIA
     Dosage: 694 MG, CYCLICAL
     Route: 042
     Dates: start: 20141103, end: 20141103
  6. RITUXIMAB [Suspect]
     Active Substance: RITUXIMAB
     Dosage: 930 MG, CYCLICAL
     Route: 042
     Dates: start: 20141229, end: 20141229
  7. PHENERGAN [Concomitant]
     Active Substance: PROMETHAZINE HYDROCHLORIDE
     Indication: PROPHYLAXIS
     Route: 042
     Dates: start: 20141230, end: 20141230
  8. SALPRAZ [Concomitant]
     Indication: NAUSEA
     Dosage: UNK
     Route: 048
     Dates: start: 20150112, end: 20150209
  9. MYLANTA                            /00416501/ [Concomitant]
     Indication: NAUSEA
     Dosage: UNK
     Route: 048
     Dates: start: 20150108, end: 20150209
  10. IDELALISIB [Suspect]
     Active Substance: IDELALISIB
     Indication: CHRONIC LYMPHOCYTIC LEUKAEMIA
     Dosage: 150 MG, BID
     Route: 048
     Dates: start: 20141103
  11. BENDAMUSTINE [Suspect]
     Active Substance: BENDAMUSTINE
     Dosage: 167 MG, CYCLICAL
     Route: 042
     Dates: start: 20141229, end: 20141229
  12. BENDAMUSTINE [Suspect]
     Active Substance: BENDAMUSTINE
     Dosage: 167 MG, CYCLICAL
     Route: 042
     Dates: start: 20141230, end: 20141230
  13. BENDAMUSTINE [Suspect]
     Active Substance: BENDAMUSTINE
     Dosage: 167 MG, CYCLICAL
     Route: 042
     Dates: start: 20150128, end: 20150128
  14. PREDNISOLONE. [Concomitant]
     Active Substance: PREDNISOLONE
     Indication: PREMEDICATION
     Route: 048
     Dates: start: 20141202
  15. PARACETAMOL [Concomitant]
     Active Substance: ACETAMINOPHEN
     Indication: PREMEDICATION
     Route: 048
     Dates: start: 20141103
  16. BENDAMUSTINE [Suspect]
     Active Substance: BENDAMUSTINE
     Dosage: 167 MG, CYCLICAL
     Route: 042
     Dates: start: 20141202, end: 20141202
  17. BENDAMUSTINE [Suspect]
     Active Substance: BENDAMUSTINE
     Dosage: 167 MG, CYCLICAL
     Route: 042
     Dates: start: 20150129, end: 20150129
  18. HYDROCORTISONE                     /00028602/ [Concomitant]
     Active Substance: HYDROCORTISONE
     Indication: PROPHYLAXIS
     Dosage: UNK
     Route: 042
     Dates: start: 20141230, end: 20141230
  19. BENDAMUSTINE [Suspect]
     Active Substance: BENDAMUSTINE
     Indication: CHRONIC LYMPHOCYTIC LEUKAEMIA
     Dosage: 134 MG, CYCLICAL
     Route: 042
     Dates: start: 20141103, end: 20141103
  20. BENDAMUSTINE [Suspect]
     Active Substance: BENDAMUSTINE
     Dosage: UNK
     Route: 042
  21. BENDAMUSTINE [Suspect]
     Active Substance: BENDAMUSTINE
     Dosage: 167 MG, CYCLICAL
     Route: 042
     Dates: start: 20141201, end: 20141201
  22. ALOXI [Concomitant]
     Active Substance: PALONOSETRON HYDROCHLORIDE
     Indication: PREMEDICATION
     Route: 040
     Dates: start: 20141103
  23. PANADOL                            /00020001/ [Concomitant]
     Dosage: UNK
     Route: 048
     Dates: start: 20141230, end: 20141230

REACTIONS (1)
  - Transient ischaemic attack [Recovered/Resolved]

NARRATIVE: CASE EVENT DATE: 20150129
